FAERS Safety Report 24872093 (Version 1)
Quarter: 2025Q1

REPORT INFORMATION
  Report Type: Spontaneous
  Country: RO (occurrence: RO)
  Receive Date: 20250122
  Receipt Date: 20250122
  Transmission Date: 20250409
  Serious: Yes (Other)
  Sender: AUROBINDO
  Company Number: RO-AUROBINDO-AUR-APL-2025-003151

PATIENT
  Age: 83 Year
  Sex: Female

DRUGS (3)
  1. ESCITALOPRAM [Suspect]
     Active Substance: ESCITALOPRAM OXALATE
     Indication: Product used for unknown indication
     Route: 065
  2. DULOXETINE [Suspect]
     Active Substance: DULOXETINE
     Indication: Product used for unknown indication
     Route: 065
  3. DULOXETINE [Suspect]
     Active Substance: DULOXETINE
     Route: 065

REACTIONS (7)
  - Dementia Alzheimer^s type [Recovering/Resolving]
  - Cognitive disorder [Recovering/Resolving]
  - Attention deficit hyperactivity disorder [Recovering/Resolving]
  - Disorientation [Recovering/Resolving]
  - Delusional perception [Recovering/Resolving]
  - Insomnia [Recovering/Resolving]
  - Behaviour disorder [Recovering/Resolving]
